FAERS Safety Report 15506414 (Version 1)
Quarter: 2018Q4

REPORT INFORMATION
  Report Type: Report from Study
  Country: GB (occurrence: GB)
  Receive Date: 20181016
  Receipt Date: 20181016
  Transmission Date: 20190205
  Serious: Yes (Hospitalization)
  Sender: FDA-Public Use
  Company Number: PHHY2018GB126346

PATIENT
  Sex: Male

DRUGS (3)
  1. COLOBREATHE [Concomitant]
     Active Substance: COLISTIMETHATE SODIUM
     Indication: PRODUCT USED FOR UNKNOWN INDICATION
     Dosage: 125 MG, BID TWICE A DAY ALTERNATE MONTHS
     Route: 055
     Dates: start: 201603
  2. TOBI PODHALER [Suspect]
     Active Substance: TOBRAMYCIN
     Indication: PRODUCT USED FOR UNKNOWN INDICATION
     Dosage: 112 MG, BID (ALTERNATE MONTHS)
     Route: 055
     Dates: start: 20140108
  3. MANNITOL. [Concomitant]
     Active Substance: MANNITOL
     Indication: PRODUCT USED FOR UNKNOWN INDICATION
     Dosage: 40 MG, BID
     Route: 055

REACTIONS (1)
  - Lower respiratory tract infection [Not Recovered/Not Resolved]
